FAERS Safety Report 19358664 (Version 1)
Quarter: 2021Q2

REPORT INFORMATION
  Report Type: Spontaneous
  Country: US (occurrence: US)
  Receive Date: 20210602
  Receipt Date: 20210602
  Transmission Date: 20210717
  Serious: Yes (Hospitalization)
  Sender: FDA-Public Use
  Company Number: None

PATIENT
  Age: 44 Year
  Sex: Female
  Weight: 134.3 kg

DRUGS (4)
  1. OMEPRAZOLE. [Concomitant]
     Active Substance: OMEPRAZOLE
  2. FERRLECIT [Suspect]
     Active Substance: SODIUM FERRIC GLUCONATE COMPLEX
     Indication: IRON DEFICIENCY ANAEMIA
     Route: 041
     Dates: start: 20210520, end: 20210520
  3. ASCORBIC ACID. [Concomitant]
     Active Substance: ASCORBIC ACID
  4. ZINC SULFATE. [Concomitant]
     Active Substance: ZINC SULFATE

REACTIONS (5)
  - Infusion related reaction [None]
  - Tongue blistering [None]
  - Urticaria [None]
  - Abdominal pain [None]
  - Joint stiffness [None]

NARRATIVE: CASE EVENT DATE: 20210520
